FAERS Safety Report 22380896 (Version 1)
Quarter: 2023Q2

REPORT INFORMATION
  Report Type: Spontaneous
  Country: RO (occurrence: RO)
  Receive Date: 20230530
  Receipt Date: 20230530
  Transmission Date: 20230721
  Serious: Yes (Hospitalization, Other)
  Sender: FDA-Public Use
  Company Number: RO-drreddys-LIT/ROM/23/0164966

PATIENT
  Age: 77 Year
  Sex: Female

DRUGS (6)
  1. DULOXETINE [Suspect]
     Active Substance: DULOXETINE
     Indication: Antidepressant therapy
     Dosage: 60 MILLIGRAM
     Route: 065
  2. DULOXETINE [Suspect]
     Active Substance: DULOXETINE
     Indication: Major depression
  3. GABAPENTIN [Suspect]
     Active Substance: GABAPENTIN
     Indication: Drug therapy
     Dosage: 300 MILLIGRAM, TWO TIMES A DAY
     Route: 065
  4. GABAPENTIN [Suspect]
     Active Substance: GABAPENTIN
     Indication: Major depression
  5. RIVOTRIL [Suspect]
     Active Substance: CLONAZEPAM
     Indication: Drug therapy
     Dosage: 0.5 MILLIGRAM, DAILY
     Route: 065
  6. RIVOTRIL [Suspect]
     Active Substance: CLONAZEPAM
     Indication: Major depression

REACTIONS (4)
  - Splenic vein thrombosis [Unknown]
  - Cholangiocarcinoma [Unknown]
  - Metastases to liver [Unknown]
  - Drug ineffective [Unknown]
